FAERS Safety Report 9614997 (Version 1)
Quarter: 2013Q4

REPORT INFORMATION
  Report Type: Spontaneous
  Country: US (occurrence: US)
  Receive Date: 20131011
  Receipt Date: 20131011
  Transmission Date: 20140711
  Serious: No
  Sender: FDA-Public Use
  Company Number: US-PURDUE-USA-2013-0097367

PATIENT
  Age: 23 Year
  Sex: Female

DRUGS (4)
  1. BUTRANS [Suspect]
     Indication: BACK PAIN
     Dosage: 5 MCG, UNK
     Route: 062
  2. BUTRANS [Suspect]
     Indication: PAIN IN EXTREMITY
  3. VICODIN [Concomitant]
     Indication: PAIN IN EXTREMITY
     Dosage: 2 TABLET, DAILY
  4. VICODIN [Concomitant]
     Indication: BACK PAIN

REACTIONS (1)
  - Fatigue [Unknown]
